FAERS Safety Report 19464552 (Version 9)
Quarter: 2024Q4

REPORT INFORMATION
  Report Type: Report from Study
  Country: US (occurrence: US)
  Receive Date: 20210626
  Receipt Date: 20241030
  Transmission Date: 20250115
  Serious: Yes (Hospitalization, Other)
  Sender: TAKEDA
  Company Number: US-TAKEDA-US202016844

PATIENT
  Age: 54 Year
  Sex: Female

DRUGS (2)
  1. HUMAN IMMUNOGLOBULIN G [Suspect]
     Active Substance: HUMAN IMMUNOGLOBULIN G
     Indication: Immunodeficiency common variable
     Dosage: UNK
     Route: 058
  2. HUMAN IMMUNOGLOBULIN G [Suspect]
     Active Substance: HUMAN IMMUNOGLOBULIN G
     Indication: Primary immunodeficiency syndrome

REACTIONS (17)
  - Sepsis [Unknown]
  - Respiratory failure [Unknown]
  - Brain injury [Unknown]
  - Foot fracture [Unknown]
  - Pleural effusion [Unknown]
  - Cerebrovascular accident [Unknown]
  - Pulmonary mass [Unknown]
  - Allergy to metals [Unknown]
  - Upper-airway cough syndrome [Unknown]
  - Renal function test abnormal [Unknown]
  - Blood thyroid stimulating hormone increased [Unknown]
  - Enlarged uvula [Unknown]
  - Superior vena cava syndrome [Unknown]
  - Hereditary angioedema [Unknown]
  - Blood pressure increased [Unknown]
  - Eye swelling [Unknown]
  - Headache [Not Recovered/Not Resolved]

NARRATIVE: CASE EVENT DATE: 20241028
